FAERS Safety Report 7427950-6 (Version None)
Quarter: 2011Q2

REPORT INFORMATION
  Report Type: 
  Country: None (occurrence: None)
  Receive Date: 20110421
  Receipt Date: 20110405
  Transmission Date: 20111010
  Serious: Yes (Other)
  Sender: FDA-Public Use
  Company Number: US-BAYER-2011-025334

PATIENT
  Age: 37 Year
  Sex: Female
  Weight: 58.957 kg

DRUGS (11)
  1. YAZ [Suspect]
     Indication: POLYCYSTIC OVARIES
     Dosage: 1 DF, QD
     Route: 048
     Dates: start: 19990101, end: 20080101
  2. FLECAINIDE ACETATE [Concomitant]
     Dosage: UNK
  3. ELMIRON [Concomitant]
  4. MACROBID [Concomitant]
     Indication: URINARY TRACT INFECTION
  5. INDERAL [Concomitant]
  6. MULTI-VITAMINS [Concomitant]
  7. TORADOL [Concomitant]
     Dosage: UNK
     Route: 041
     Dates: start: 20081008, end: 20081008
  8. FLORINEF [Concomitant]
     Dosage: TWICE DAILY
     Route: 048
  9. YASMIN [Suspect]
     Indication: POLYCYSTIC OVARIES
     Dosage: 1 DF, QD
     Route: 048
     Dates: start: 19990101, end: 20091103
  10. OCELLA [Suspect]
     Indication: POLYCYSTIC OVARIES
     Dosage: 1 DF, QD
     Route: 048
     Dates: start: 19990101, end: 20080101
  11. NORPACE [Concomitant]

REACTIONS (3)
  - CHOLELITHIASIS [None]
  - CYSTITIS INTERSTITIAL [None]
  - SUPRAVENTRICULAR TACHYCARDIA [None]
